FAERS Safety Report 9054838 (Version 1)
Quarter: 2013Q1

REPORT INFORMATION
  Report Type: Report from Study
  Country: CA (occurrence: CA)
  Receive Date: 20130208
  Receipt Date: 20130208
  Transmission Date: 20140127
  Serious: Yes (Other)
  Sender: FDA-Public Use
  Company Number: CA-JNJFOC-20130200515

PATIENT
  Sex: Male
  Weight: 52 kg

DRUGS (4)
  1. REMICADE [Suspect]
     Indication: COLITIS ULCERATIVE
     Route: 042
     Dates: start: 20120820
  2. 6 MP [Concomitant]
     Route: 065
  3. IRON [Concomitant]
     Route: 065
  4. MULTIVITAMINS [Concomitant]
     Route: 065

REACTIONS (1)
  - Ingrowing nail [Unknown]
